FAERS Safety Report 24171329 (Version 1)
Quarter: 2024Q3

REPORT INFORMATION
  Report Type: Spontaneous
  Country: US (occurrence: US)
  Receive Date: 20240805
  Receipt Date: 20240805
  Transmission Date: 20241017
  Serious: No
  Sender: RANBAXY
  Company Number: US-SUN PHARMACEUTICAL INDUSTRIES LTD-2024R1-440188

PATIENT
  Sex: Male

DRUGS (2)
  1. ODOMZO [Suspect]
     Active Substance: SONIDEGIB
     Indication: Basal cell carcinoma
     Dosage: 1 PER DAY
     Route: 065
     Dates: start: 202212
  2. ODOMZO [Suspect]
     Active Substance: SONIDEGIB
     Dosage: 800 UNK
     Route: 065
     Dates: start: 202305

REACTIONS (2)
  - Extra dose administered [Unknown]
  - Product dose omission issue [Unknown]
